FAERS Safety Report 4973934-7 (Version None)
Quarter: 2006Q2

REPORT INFORMATION
  Report Type: 
  Country: None (occurrence: None)
  Receive Date: 20060417
  Receipt Date: 20060410
  Transmission Date: 20061013
  Serious: Yes (Other)
  Sender: FDA-Public Use
  Company Number: JP-BRISTOL-MYERS SQUIBB COMPANY-13343637

PATIENT
  Age: 71 Year
  Sex: Female

DRUGS (17)
  1. BREVIBLOC [Suspect]
     Indication: ATRIAL FIBRILLATION
     Route: 042
     Dates: start: 20060328, end: 20060328
  2. ATROPINE SULFATE [Concomitant]
     Indication: ANAESTHETIC PREMEDICATION
     Dosage: 0.5 MG FOR ANAESTHETIC PREMED, THEN 1.0 MG FOR SIDE REACTION PREVENTION OF ANTICHOLLNESTERASE
     Route: 042
     Dates: start: 20060328, end: 20060328
  3. MIDAZOLAM [Concomitant]
     Indication: ANAESTHETIC PREMEDICATION
     Route: 042
     Dates: start: 20060328, end: 20060328
  4. PHENOBARBITAL TAB [Concomitant]
     Indication: ANAESTHETIC PREMEDICATION
     Route: 042
     Dates: start: 20060328, end: 20060328
  5. THIOPENTAL SODIUM [Concomitant]
     Indication: INDUCTION OF ANAESTHESIA
     Route: 042
     Dates: start: 20060328, end: 20060328
  6. FENTANYL CITRATE [Concomitant]
     Indication: MAINTENANCE OF ANAESTHESIA
     Route: 042
     Dates: start: 20060328, end: 20060328
  7. SEVOFLURANE [Concomitant]
     Indication: MAINTENANCE OF ANAESTHESIA
     Route: 055
     Dates: start: 20060328, end: 20060328
  8. VECURONIUM BROMIDE [Concomitant]
     Indication: HYPOTONIA
     Route: 042
     Dates: start: 20060328, end: 20060328
  9. EPHEDRINE HYDROCHLORIDE [Concomitant]
     Indication: BLOOD PRESSURE DECREASED
     Route: 042
     Dates: start: 20060328, end: 20060328
  10. PHENYLEPHRINE HCL [Concomitant]
     Indication: BLOOD PRESSURE DECREASED
     Route: 042
     Dates: start: 20060328, end: 20060328
  11. DOPAMINE HCL [Concomitant]
     Indication: BLOOD PRESSURE DECREASED
     Route: 042
     Dates: start: 20060328, end: 20060328
  12. CALCIUM CHLORIDE [Concomitant]
     Indication: CARDIAC FAILURE
     Route: 042
     Dates: start: 20060328, end: 20060328
  13. NICARDIPINE HCL [Concomitant]
     Indication: BLOOD PRESSURE INCREASED
     Route: 042
     Dates: start: 20060328, end: 20060328
  14. LANDIOLOL HCL [Concomitant]
     Indication: ATRIAL FIBRILLATION
     Route: 042
     Dates: start: 20060328, end: 20060328
  15. CEFOTIAM HCL [Concomitant]
     Indication: INFECTION PROPHYLAXIS
     Route: 042
     Dates: start: 20060328, end: 20060328
  16. MANNITOL [Concomitant]
     Indication: CEREBRAL HYPOPERFUSION
     Route: 042
     Dates: start: 20060328, end: 20060328
  17. NEOSTIGMINE METHYLSULFATE [Concomitant]
     Indication: HYPOTONIA
     Route: 042
     Dates: start: 20060328, end: 20060328

REACTIONS (2)
  - BLOOD PRESSURE DECREASED [None]
  - CEREBRAL INFARCTION [None]
